FAERS Safety Report 8970651 (Version 1)
Quarter: 2012Q4

REPORT INFORMATION
  Report Type: 
  Country: US (occurrence: US)
  Receive Date: 20121218
  Receipt Date: 20121218
  Transmission Date: 20130627
  Serious: Yes (Other)
  Sender: FDA-Public Use
  Company Number: US-BRISTOL-MYERS SQUIBB COMPANY-17086075

PATIENT
  Age: 53 Year
  Sex: Female
  Weight: 58.96 kg

DRUGS (2)
  1. ABILIFY [Suspect]
     Indication: BIPOLAR DISORDER
     Dates: start: 2012, end: 2012
  2. LITHIUM [Suspect]
     Indication: BIPOLAR DISORDER

REACTIONS (2)
  - Parkinsonism [Recovered/Resolved]
  - Treatment noncompliance [Unknown]
